FAERS Safety Report 9051555 (Version 2)
Quarter: 2013Q1

REPORT INFORMATION
  Report Type: Report from Study
  Country: CA (occurrence: CA)
  Receive Date: 20130207
  Receipt Date: 20130221
  Transmission Date: 20140127
  Serious: Yes (Life-Threatening, Hospitalization, Other)
  Sender: FDA-Public Use
  Company Number: CA-BIOGENIDEC-2013BI010301

PATIENT
  Age: 24 Year
  Sex: Female

DRUGS (12)
  1. TYSABRI [Suspect]
     Indication: RELAPSING-REMITTING MULTIPLE SCLEROSIS
     Route: 042
     Dates: start: 20080425
  2. ESCITALOPRAM [Concomitant]
     Indication: ANTIDEPRESSANT THERAPY
     Route: 048
     Dates: start: 20130101
  3. TRAZODONE [Concomitant]
     Indication: SLEEP DISORDER
     Route: 048
     Dates: start: 20130101
  4. PHENYTON SODIUM [Concomitant]
     Indication: CONVULSION PROPHYLAXIS
     Route: 048
     Dates: start: 20130101
  5. ALPRAZOLAM [Concomitant]
     Indication: ANXIETY
     Route: 048
     Dates: start: 20130101
  6. DOCOSATE SODIUM [Concomitant]
     Indication: CONSTIPATION PROPHYLAXIS
     Route: 048
     Dates: start: 20130101
  7. TYLENOL MUSCLE ACHE [Concomitant]
     Indication: PAIN PROPHYLAXIS
     Route: 048
     Dates: start: 20130101
  8. VITAMIN D [Concomitant]
     Indication: ROUTINE HEALTH MAINTENANCE
     Route: 048
     Dates: start: 20130101
  9. B12 [Concomitant]
     Indication: ROUTINE HEALTH MAINTENANCE
     Route: 048
     Dates: start: 20130101
  10. AMITRIPTYLINE [Concomitant]
     Route: 048
  11. CIPRALIX [Concomitant]
     Route: 048
  12. ALPRAZOLAM [Concomitant]

REACTIONS (1)
  - Overdose [Recovered/Resolved]
